FAERS Safety Report 5925307-8 (Version None)
Quarter: 2008Q4

REPORT INFORMATION
  Report Type: 
  Country: None (occurrence: None)
  Receive Date: 20081020
  Receipt Date: 20081020
  Transmission Date: 20090506
  Serious: Yes (Other)
  Sender: FDA-Public Use
  Company Number: None

PATIENT
  Age: 7 Year
  Sex: Male
  Weight: 30 kg

DRUGS (2)
  1. PULMICORT [Suspect]
     Indication: ASTHMA
     Dosage: MOSTLY 200UG DAILY OTHER
     Route: 050
     Dates: start: 20080101, end: 20080101
  2. PULMICORT [Suspect]
     Indication: ASTHMA
     Dosage: MOSTLY 200UG DAILY OTHER
     Route: 050
     Dates: start: 20050501, end: 20081001

REACTIONS (1)
  - HALLUCINATION, AUDITORY [None]
